FAERS Safety Report 6003350-0 (Version None)
Quarter: 2008Q4

REPORT INFORMATION
  Report Type: 
  Country: None (occurrence: None)
  Receive Date: 20081216
  Receipt Date: 20081208
  Transmission Date: 20090506
  Serious: Yes (Death)
  Sender: FDA-Public Use
  Company Number: AU-CELGENEUS-008-21880-08061794

PATIENT
  Sex: Male

DRUGS (2)
  1. REVLIMID [Suspect]
     Indication: MULTIPLE MYELOMA
     Route: 048
     Dates: start: 20080409
  2. REVLIMID [Suspect]
     Route: 048
     Dates: start: 20080620, end: 20080715

REACTIONS (2)
  - MULTIPLE MYELOMA [None]
  - THROMBOCYTOPENIA [None]
